FAERS Safety Report 6320496-8 (Version None)
Quarter: 2009Q3

REPORT INFORMATION
  Report Type: 
  Country: None (occurrence: None)
  Receive Date: 20090822
  Receipt Date: 20081111
  Transmission Date: 20100115
  Serious: No
  Sender: FDA-Public Use
  Company Number: US-ABBOTT-08P-163-0487122-00

PATIENT
  Sex: Male
  Weight: 76.272 kg

DRUGS (3)
  1. NIASPAN [Suspect]
     Indication: BLOOD CHOLESTEROL
     Dates: start: 20080501
  2. NIASPAN [Suspect]
     Dates: start: 20040101, end: 20080501
  3. NIASPAN [Suspect]
     Route: 048
     Dates: start: 20010101

REACTIONS (3)
  - EOSINOPHIL COUNT INCREASED [None]
  - GINGIVAL PAIN [None]
  - PLATELET COUNT DECREASED [None]
